FAERS Safety Report 21885248 (Version 1)
Quarter: 2023Q1

REPORT INFORMATION
  Report Type: Spontaneous
  Country: US (occurrence: None)
  Receive Date: 20230118
  Receipt Date: 20230118
  Transmission Date: 20230417
  Serious: Yes (Hospitalization)
  Sender: FDA-Public Use
  Company Number: None

PATIENT
  Sex: Male

DRUGS (2)
  1. TOBRAMYCIN [Suspect]
     Active Substance: TOBRAMYCIN
     Indication: Bronchiectasis
     Dosage: 300MG/4ML INHALATION??ADMINISTER  4 ML (200 MG TOTAL)  VIA NEBULIZER TWICE DAILY FOR 28 DAYS ON, THE
     Route: 055
     Dates: start: 20210409
  2. TOBRAMYCIN [Suspect]
     Active Substance: TOBRAMYCIN
     Indication: Condition aggravated
     Dosage: OTHER QUANTITY : 4ML (300MG TOTAL);?FREQUENCY : AS DIRECTED;?
     Route: 055

REACTIONS (2)
  - Dyspnoea [None]
  - Cystic fibrosis [None]
